FAERS Safety Report 8651610 (Version 3)
Quarter: 2012Q4

REPORT INFORMATION
  Report Type: 
  Country: US (occurrence: US)
  Receive Date: 20120706
  Receipt Date: 20121212
  Transmission Date: 20130627
  Serious: Yes (Hospitalization, Disabling)
  Sender: FDA-Public Use
  Company Number: US-BAYER-2012-065046

PATIENT
  Age: 54 Year
  Sex: Female
  Weight: 61.22 kg

DRUGS (7)
  1. YAZ [Suspect]
     Indication: CONTRACEPTION
     Dosage: UNK
     Dates: start: 200911, end: 201111
  2. YAZ [Suspect]
     Indication: HORMONE THERAPY
  3. GIANVI [Suspect]
     Indication: CONTRACEPTION
     Dosage: UNK
     Dates: start: 201007, end: 201009
  4. GIANVI [Suspect]
     Indication: HORMONE THERAPY
  5. SYNTHROID [Concomitant]
     Dosage: 0.075 mg, UNK
     Route: 048
  6. FLURBIPROFEN [Concomitant]
     Dosage: 100 mg, UNK
     Route: 048
  7. OXAZEPAM [Concomitant]
     Dosage: 15 mg, UNK
     Route: 048

REACTIONS (6)
  - Pulmonary embolism [Recovered/Resolved]
  - Injury [Recovered/Resolved]
  - Pain [Recovered/Resolved]
  - Deformity [None]
  - Anxiety [None]
  - Anhedonia [None]
